FAERS Safety Report 8300651-8 (Version None)
Quarter: 2012Q2

REPORT INFORMATION
  Report Type: 
  Country: None (occurrence: None)
  Receive Date: 20120417
  Receipt Date: 20120404
  Transmission Date: 20120825
  Serious: Yes (Hospitalization, Other)
  Sender: FDA-Public Use
  Company Number: AUR-APL-2012-01599

PATIENT
  Age: 55 Year
  Sex: Female
  Weight: 95 kg

DRUGS (6)
  1. LISINOPRIL [Suspect]
     Indication: HYPERTENSION
     Dosage: (10 MG, 1 D)
  2. NIASPAN [Suspect]
     Indication: HIGH DENSITY LIPOPROTEIN ABNORMAL
     Dosage: (1 D)
     Dates: start: 20090101
  3. COREG [Suspect]
     Indication: HYPERTENSION
     Dosage: 25 MG (12.5 MG, 2 IN 1 D)
  4. METFORMIN HCL [Concomitant]
  5. LIPITOR [Suspect]
     Indication: BLOOD CHOLESTEROL INCREASED
     Dosage: (40 MG, 1 D)
     Dates: start: 20070101
  6. PLAVIX [Concomitant]

REACTIONS (7)
  - PRURITUS [None]
  - RASH [None]
  - BLOOD PRESSURE INCREASED [None]
  - SWELLING FACE [None]
  - ERYTHEMA [None]
  - CORONARY ARTERY BYPASS [None]
  - FLUSHING [None]
